FAERS Safety Report 9115350 (Version 2)
Quarter: 2013Q1

REPORT INFORMATION
  Report Type: Spontaneous
  Country: US (occurrence: None)
  Receive Date: 20130128
  Receipt Date: 20130201
  Transmission Date: 20140127
  Serious: Yes (Hospitalization)
  Sender: FDA-Public Use
  Company Number: 2013AP000104

PATIENT
  Age: 76 Year
  Sex: Male

DRUGS (15)
  1. CLOPIDOGREL TABLETS USP [Suspect]
     Indication: ANTIPLATELET THERAPY
     Route: 048
  2. ASPIRIN [Suspect]
     Indication: ANTIPLATELET THERAPY
     Route: 048
  3. CARVEDILOL [Concomitant]
  4. BENAZEPRIL [Concomitant]
  5. ROSUVASTATIN [Concomitant]
  6. GLIPIZIDE [Concomitant]
  7. ALLOPURINOL [Concomitant]
  8. TAMSULOSIN [Concomitant]
  9. OMEPRAZOLE [Concomitant]
  10. PREDNISONE [Concomitant]
  11. FLUTICASONE PROPIONATE W/SALMETEROL [Concomitant]
  12. IPRATROPIUM BROMIDE [Concomitant]
  13. TIOTROPIUM BROMIDE [Concomitant]
  14. HEPARIN [Concomitant]
  15. PACLITAXEL [Concomitant]

REACTIONS (4)
  - Spontaneous haematoma [None]
  - Hepatic haematoma [None]
  - Oedema [None]
  - Abdominal tenderness [None]
